FAERS Safety Report 5581849-9 (Version None)
Quarter: 2008Q1

REPORT INFORMATION
  Report Type: 
  Country: None (occurrence: None)
  Receive Date: 20080104
  Receipt Date: 20071224
  Transmission Date: 20080703
  Serious: Yes (Other)
  Sender: FDA-Public Use
  Company Number: BE-PFIZER INC-2008000394

PATIENT
  Sex: Male

DRUGS (2)
  1. GENOTROPIN [Suspect]
     Dates: start: 20010321, end: 20020327
  2. GENOTROPIN [Suspect]
     Dates: start: 20040322, end: 20071201

REACTIONS (1)
  - GASTRIC CANCER [None]
